FAERS Safety Report 14324120 (Version 2)
Quarter: 2018Q1

REPORT INFORMATION
  Report Type: Spontaneous
  Country: GB (occurrence: GB)
  Receive Date: 20171226
  Receipt Date: 20180110
  Transmission Date: 20180509
  Serious: Yes (Death, Hospitalization, Other)
  Sender: FDA-Public Use
  Company Number: PHHY2016GB185887

PATIENT
  Age: 66 Year
  Sex: Male
  Weight: 101 kg

DRUGS (2)
  1. DEXAMETHASONE. [Suspect]
     Active Substance: DEXAMETHASONE
     Indication: PROPHYLAXIS
     Route: 065
  2. HUMIRA [Suspect]
     Active Substance: ADALIMUMAB
     Indication: PSORIATIC ARTHROPATHY
     Route: 058

REACTIONS (15)
  - Psoriatic arthropathy [Fatal]
  - Myocardial infarction [Fatal]
  - Peripheral swelling [Fatal]
  - Malaise [Fatal]
  - Hyperdynamic left ventricle [Fatal]
  - Opportunistic infection [Fatal]
  - Pneumocystis jirovecii pneumonia [Fatal]
  - Renal impairment [Fatal]
  - Cardiac failure congestive [Fatal]
  - Lung infiltration [Fatal]
  - Electrocardiogram Q waves [Fatal]
  - Bronchopulmonary aspergillosis [Fatal]
  - Immunosuppression [Fatal]
  - Hypertensive heart disease [Fatal]
  - Respiratory failure [Fatal]

NARRATIVE: CASE EVENT DATE: 20151106
